FAERS Safety Report 5639460-7 (Version None)
Quarter: 2008Q1

REPORT INFORMATION
  Report Type: 
  Country: None (occurrence: None)
  Receive Date: 20080222
  Receipt Date: 20080208
  Transmission Date: 20080703
  Serious: Yes (Other)
  Sender: FDA-Public Use
  Company Number: 2008003682

PATIENT
  Sex: Female

DRUGS (1)
  1. ROGAINE 5 [Suspect]
     Dosage: INHALATION

REACTIONS (1)
  - ASTHMA [None]
